FAERS Safety Report 6381135-3 (Version None)
Quarter: 2009Q3

REPORT INFORMATION
  Report Type: 
  Country: None (occurrence: None)
  Receive Date: 20090925
  Receipt Date: 20090925
  Transmission Date: 20100115
  Serious: Yes (Death, Congenital Anomaly)
  Sender: FDA-Public Use
  Company Number: None

PATIENT
  Age: 36 Year
  Sex: Female
  Weight: 61.2356 kg

DRUGS (3)
  1. ZOLOFT [Suspect]
     Indication: DEPRESSION
     Dosage: 100 MG DAILY PO
     Route: 048
     Dates: start: 20080801, end: 20081230
  2. ONDANSETRON [Suspect]
     Indication: NAUSEA
     Dosage: 8 MG DAILY SL
     Route: 060
     Dates: start: 20080910, end: 20081105
  3. ONDANSETRON [Suspect]
     Indication: VOMITING IN PREGNANCY
     Dosage: 8 MG DAILY SL
     Route: 060
     Dates: start: 20080910, end: 20081105

REACTIONS (4)
  - ANOMALOUS PULMONARY VENOUS CONNECTION [None]
  - HEART DISEASE CONGENITAL [None]
  - MATERNAL DRUGS AFFECTING FOETUS [None]
  - SUDDEN DEATH [None]
